FAERS Safety Report 16038123 (Version 1)
Quarter: 2019Q1

REPORT INFORMATION
  Report Type: Spontaneous
  Country: IT (occurrence: IT)
  Receive Date: 20190305
  Receipt Date: 20190305
  Transmission Date: 20190418
  Serious: Yes (Disabling)
  Sender: FDA-Public Use
  Company Number: IT-MYLANLABS-2019M1019051

PATIENT
  Age: 38 Year
  Sex: Male
  Weight: 78 kg

DRUGS (1)
  1. LEVOFLOXACIN. [Suspect]
     Active Substance: LEVOFLOXACIN
     Indication: ACUTE SINUSITIS
     Dosage: 500 MILLIGRAM, QD
     Route: 048
     Dates: start: 20180714, end: 20180718

REACTIONS (3)
  - Arthralgia [Not Recovered/Not Resolved]
  - Tendon pain [Not Recovered/Not Resolved]
  - Gait disturbance [Not Recovered/Not Resolved]

NARRATIVE: CASE EVENT DATE: 20180730
